FAERS Safety Report 5438877-3 (Version None)
Quarter: 2007Q3

REPORT INFORMATION
  Report Type: 
  Country: None (occurrence: None)
  Receive Date: 20070831
  Receipt Date: 20070821
  Transmission Date: 20080115
  Serious: Yes (Hospitalization)
  Sender: FDA-Public Use
  Company Number: US-JNJFOC-20070804824

PATIENT
  Age: 65 Year
  Sex: Female

DRUGS (4)
  1. INVEGA [Suspect]
     Route: 048
  2. INVEGA [Suspect]
     Indication: SCHIZOPHRENIA
     Route: 048
  3. RISPERDAL [Suspect]
     Dosage: 1 MG IN AM AND 2 MG IN PM
     Route: 048
  4. RISPERDAL [Suspect]
     Indication: SCHIZOPHRENIA
     Dosage: 1MG IN AM AND 2 MG IN PM
     Route: 048

REACTIONS (2)
  - DRUG INEFFECTIVE [None]
  - OVERDOSE [None]
